FAERS Safety Report 10078231 (Version 1)
Quarter: 2014Q2

REPORT INFORMATION
  Report Type: Spontaneous
  Country: FR (occurrence: FR)
  Receive Date: 20140415
  Receipt Date: 20140415
  Transmission Date: 20141212
  Serious: Yes (Other)
  Sender: FDA-Public Use
  Company Number: FR-PAR PHARMACEUTICAL, INC-2014SCPR008992

PATIENT
  Sex: 0

DRUGS (9)
  1. OLANZAPINE [Suspect]
     Indication: PSYCHOTIC DISORDER
     Dosage: UNK, UNKNOWN
     Route: 065
  2. CARBAMAZEPINE [Suspect]
     Indication: EPILEPSY
     Dosage: UNK, UNKNOWN
     Route: 065
  3. PIPERACILLIN [Suspect]
     Indication: BRAIN ABSCESS
     Dosage: UNK, UNKNOWN
     Route: 065
  4. CLOZAPINE [Concomitant]
     Indication: PRODUCT USED FOR UNKNOWN INDICATION
     Dosage: UNK, UNKNOWN
     Route: 065
  5. CYAMEMAZINE [Concomitant]
     Indication: PSYCHOTIC DISORDER
     Dosage: UNK, UNKNOWN
     Route: 065
  6. CEFOTAXIME [Concomitant]
     Indication: BRAIN ABSCESS
     Dosage: UNK, UNKNOWN
     Route: 065
  7. FOSFOMYCIN [Concomitant]
     Indication: BRAIN ABSCESS
     Dosage: UNK, UNKNOWN
     Route: 065
  8. RIFAMPICIN [Concomitant]
     Indication: BRAIN ABSCESS
     Dosage: UNK, UNKNOWN
     Route: 065
  9. CONTRAST MEDIA [Concomitant]
     Indication: PRODUCT USED FOR UNKNOWN INDICATION
     Dosage: UNK, UNKNOWN
     Route: 065

REACTIONS (2)
  - Drug reaction with eosinophilia and systemic symptoms [Recovered/Resolved]
  - Cross sensitivity reaction [Unknown]
